FAERS Safety Report 10462732 (Version 5)
Quarter: 2014Q4

REPORT INFORMATION
  Report Type: Report from Study
  Country: ZA (occurrence: ZA)
  Receive Date: 20140918
  Receipt Date: 20141229
  Transmission Date: 20150528
  Serious: Yes (Hospitalization)
  Sender: FDA-Public Use
  Company Number: ZA-NOVOPROD-419982

PATIENT
  Age: 65 Year
  Sex: Male
  Weight: 115.5 kg

DRUGS (10)
  1. IODINE (131 I) [Concomitant]
     Active Substance: SODIUM IODIDE I-131
     Dates: start: 20140828, end: 20140828
  2. ZANIDIP [Concomitant]
     Active Substance: LERCANIDIPINE HYDROCHLORIDE
  3. PLENISH-K [Concomitant]
  4. NOVORAPID [Suspect]
     Active Substance: INSULIN ASPART
     Indication: TYPE 2 DIABETES MELLITUS
     Dosage: 150 U, QD
     Route: 058
     Dates: start: 20140617
  5. PURESIS [Concomitant]
     Active Substance: FUROSEMIDE
     Indication: CARDIAC FAILURE CONGESTIVE
     Dates: start: 20140723, end: 20140819
  6. LANTUS [Suspect]
     Active Substance: INSULIN GLARGINE
     Indication: TYPE 2 DIABETES MELLITUS
     Dosage: 90.0,,QD
     Route: 058
     Dates: start: 20140617
  7. CARVEDILOL. [Concomitant]
     Active Substance: CARVEDILOL
     Dosage: UNK
     Dates: start: 201405
  8. WARFARIN [Concomitant]
     Active Substance: WARFARIN
  9. AMLATE [Concomitant]
     Dosage: 5 MG, QD
  10. CARVEDILOL. [Concomitant]
     Active Substance: CARVEDILOL
     Dates: start: 201405

REACTIONS (3)
  - Toxic goitre [Not Recovered/Not Resolved]
  - Cardiac failure congestive [Recovered/Resolved]
  - Atrial fibrillation [Not Recovered/Not Resolved]

NARRATIVE: CASE EVENT DATE: 20140801
